FAERS Safety Report 24629181 (Version 1)
Quarter: 2024Q4

REPORT INFORMATION
  Report Type: Spontaneous
  Country: AU (occurrence: AU)
  Receive Date: 20241118
  Receipt Date: 20241118
  Transmission Date: 20250115
  Serious: Yes (Other)
  Sender: NOVO NORDISK
  Company Number: AU-NOVOPROD-1314781

PATIENT

DRUGS (1)
  1. OZEMPIC [Suspect]
     Active Substance: SEMAGLUTIDE
     Indication: Product used for unknown indication
     Dosage: UNKNOWN

REACTIONS (7)
  - Suicidal ideation [Unknown]
  - Product availability issue [Unknown]
  - Anxiety [Unknown]
  - Depression [Unknown]
  - Increased appetite [Unknown]
  - Fatigue [Unknown]
  - Asthenia [Unknown]
